FAERS Safety Report 11914898 (Version 2)
Quarter: 2016Q1

REPORT INFORMATION
  Report Type: Spontaneous
  Country: TR (occurrence: TR)
  Receive Date: 20160113
  Receipt Date: 20160210
  Transmission Date: 20160526
  Serious: Yes (Other)
  Sender: FDA-Public Use
  Company Number: TR-APOTEX-2016AP005133

PATIENT
  Age: 49 Year
  Sex: Female

DRUGS (8)
  1. RISPERIDONE. [Suspect]
     Active Substance: RISPERIDONE
     Indication: SCHIZOPHRENIA
     Dosage: 2 MG/DAY
     Route: 065
  2. SODIUM VALPROATE [Suspect]
     Active Substance: VALPROATE SODIUM
     Indication: SCHIZOPHRENIA
     Dosage: 1000 MG/DAY
     Route: 065
  3. AMISULPRIDE [Suspect]
     Active Substance: AMISULPRIDE
     Indication: SCHIZOPHRENIA
     Dosage: 800 MG/DAY
     Route: 048
  4. RISPERIDONE. [Suspect]
     Active Substance: RISPERIDONE
     Dosage: 50 MG, UNK
     Route: 030
  5. RISPERIDONE. [Suspect]
     Active Substance: RISPERIDONE
     Indication: SCHIZOPHRENIA
     Dosage: 50 MG, TWICE A MONTH
     Route: 030
  6. PRIMIDONE. [Suspect]
     Active Substance: PRIMIDONE
     Indication: TREMOR
     Dosage: 500 MG/DAY
     Route: 048
  7. PRIMIDONE. [Suspect]
     Active Substance: PRIMIDONE
     Dosage: UNK
     Route: 065
  8. BIPERIDEN [Concomitant]
     Active Substance: BIPERIDEN
     Indication: SCHIZOPHRENIA
     Dosage: 4 MG/DAY
     Route: 065

REACTIONS (2)
  - Encephalopathy [Recovered/Resolved]
  - Neuroleptic malignant syndrome [Recovered/Resolved]
